FAERS Safety Report 8182245-0 (Version None)
Quarter: 2012Q1

REPORT INFORMATION
  Report Type: 
  Country: None (occurrence: None)
  Receive Date: 20120302
  Receipt Date: 20120222
  Transmission Date: 20120608
  Serious: Yes (Other)
  Sender: FDA-Public Use
  Company Number: PHEH2012US004364

PATIENT
  Sex: Female

DRUGS (5)
  1. ATENOLOL [Concomitant]
     Dosage: 50 MG, QD
  2. DIOVAN HCT [Suspect]
     Dosage: 320 MG VALS, 25 MG HYDRO
  3. EFFEXOR [Suspect]
     Indication: DEPRESSION
     Dosage: 1 DF, TID
  4. XANAX [Concomitant]
     Dosage: 1 MG, TID
  5. NIASPAN [Concomitant]
     Dosage: 1000 UKN, QD, ONCE NIGHT

REACTIONS (4)
  - FATIGUE [None]
  - HEARING IMPAIRED [None]
  - DISTURBANCE IN ATTENTION [None]
  - EAR PRURITUS [None]
